FAERS Safety Report 15717081 (Version 4)
Quarter: 2019Q2

REPORT INFORMATION
  Report Type: Spontaneous
  Country: US (occurrence: US)
  Receive Date: 20181213
  Receipt Date: 20190603
  Transmission Date: 20190711
  Serious: No
  Sender: FDA-Public Use
  Company Number: US-PFIZER INC-2018511823

PATIENT
  Age: 72 Year
  Sex: Female
  Weight: 68.4 kg

DRUGS (5)
  1. BOSULIF [Suspect]
     Active Substance: BOSUTINIB MONOHYDRATE
     Indication: CHRONIC MYELOID LEUKAEMIA
     Dosage: 400 MG, DAILY
     Route: 048
     Dates: start: 20181102
  2. CANDESARTAN. [Concomitant]
     Active Substance: CANDESARTAN
     Indication: BLOOD PRESSURE MEASUREMENT
     Dosage: UNK, 2X/DAY (4MG TABLET, HALF A TABLET TWICE A DAY BY MOUTH)
     Route: 048
     Dates: start: 201811
  3. BOSULIF [Suspect]
     Active Substance: BOSUTINIB MONOHYDRATE
     Dosage: 200 MG, 1X/DAY (TWO 100MG TABLETS ONCE A DAY)
     Route: 048
  4. NATURE-THROID [Concomitant]
     Active Substance: THYROID, PORCINE
     Indication: THYROID OPERATION
     Dosage: 65 MG, 1X/DAY
     Route: 048
  5. BOSULIF [Suspect]
     Active Substance: BOSUTINIB MONOHYDRATE
     Dosage: 200 MG, 1X/DAY (TWO 100MG TABLETS ONCE A DAY)
     Route: 048

REACTIONS (6)
  - Hepatic enzyme abnormal [Recovered/Resolved]
  - Intentional product misuse [Unknown]
  - Off label use [Unknown]
  - Diarrhoea [Recovered/Resolved]
  - Abdominal pain [Unknown]
  - Product use issue [Unknown]

NARRATIVE: CASE EVENT DATE: 2018
